FAERS Safety Report 9303998 (Version 1)
Quarter: 2013Q2

REPORT INFORMATION
  Report Type: Spontaneous
  Country: PL (occurrence: PL)
  Receive Date: 20130522
  Receipt Date: 20130522
  Transmission Date: 20140414
  Serious: Yes (Hospitalization)
  Sender: FDA-Public Use
  Company Number: PHHY2013PL049933

PATIENT
  Age: 23 Year
  Sex: Female
  Weight: 130 kg

DRUGS (4)
  1. METHOTREXAT EBEWE [Suspect]
     Indication: PSORIATIC ARTHROPATHY
     Dosage: 20 MG, PER WEEK
     Route: 048
     Dates: start: 201107, end: 20120827
  2. BI-PROFENID [Suspect]
     Indication: PSORIATIC ARTHROPATHY
     Dosage: 300 MG, BID
     Dates: start: 201107
  3. BI-PROFENID [Suspect]
     Dosage: 150 MG, BID
  4. FOLIC ACID [Concomitant]
     Indication: PSORIATIC ARTHROPATHY
     Dosage: 15 MG, QW, PER WEEK
     Route: 048
     Dates: start: 201107, end: 20120827

REACTIONS (4)
  - Genital ulceration [Unknown]
  - Gastritis erosive [Unknown]
  - Aphthous stomatitis [Unknown]
  - Alopecia [Unknown]
